FAERS Safety Report 25818267 (Version 1)
Quarter: 2025Q3

REPORT INFORMATION
  Report Type: Spontaneous
  Country: EU (occurrence: EU)
  Receive Date: 20250918
  Receipt Date: 20250918
  Transmission Date: 20251020
  Serious: Yes (Other)
  Sender: HIKMA
  Company Number: None

PATIENT
  Age: 40 Year
  Sex: Female

DRUGS (2)
  1. CYCLOPHOSPHAMIDE [Suspect]
     Active Substance: CYCLOPHOSPHAMIDE
     Indication: Breast cancer
     Dosage: 1104 MILLIGRAM, 21 DAY
     Route: 042
     Dates: start: 20250626, end: 20250626
  2. EPIRUBICIN [Suspect]
     Active Substance: EPIRUBICIN
     Indication: Breast cancer
     Dosage: 165.6 MILLIGRAM, 21 DAY
     Route: 042
     Dates: start: 20250626, end: 20250626

REACTIONS (1)
  - Corneal opacity [Recovered/Resolved]

NARRATIVE: CASE EVENT DATE: 20250630
